FAERS Safety Report 10754923 (Version 1)
Quarter: 2015Q1

REPORT INFORMATION
  Report Type: Spontaneous
  Country: US (occurrence: US)
  Receive Date: 20150202
  Receipt Date: 20150202
  Transmission Date: 20150721
  Serious: No
  Sender: FDA-Public Use
  Company Number: US-ELI_LILLY_AND_COMPANY-US201501007513

PATIENT
  Sex: Female

DRUGS (2)
  1. HUMALOG [Suspect]
     Active Substance: INSULIN LISPRO
     Indication: DIABETES MELLITUS
     Dosage: UNK UNK, BID
     Route: 065
  2. LANTUS [Concomitant]
     Active Substance: INSULIN GLARGINE
     Dosage: 32 U, EACH EVENING
     Route: 065

REACTIONS (7)
  - Arthritis [Unknown]
  - Pain [Unknown]
  - Cardiac disorder [Unknown]
  - Visual impairment [Unknown]
  - Limb asymmetry [Unknown]
  - Gait disturbance [Unknown]
  - Thyroid disorder [Unknown]
